FAERS Safety Report 6435130-6 (Version None)
Quarter: 2009Q4

REPORT INFORMATION
  Report Type: 
  Country: None (occurrence: None)
  Receive Date: 20091109
  Receipt Date: 20091109
  Transmission Date: 20100525
  Serious: Yes (Hospitalization)
  Sender: FDA-Public Use
  Company Number: None

PATIENT
  Age: 51 Year
  Sex: Female
  Weight: 88 kg

DRUGS (12)
  1. PROPYLTHIOURACIL [Suspect]
     Indication: THYROTOXIC CRISIS
     Dosage: 50 MG THREE TIMES DAILY PO 2 DOSES
     Route: 048
     Dates: start: 20091102, end: 20091103
  2. ACETAMINOPHEN [Concomitant]
  3. VICODIN [Concomitant]
  4. AMLOPDIPINE [Concomitant]
  5. ANASTROZOLE [Concomitant]
  6. ESCITOLAPRAM [Concomitant]
  7. FONDAPARINUX [Concomitant]
  8. LISINOPRIL [Concomitant]
  9. PANTOPRAZOLE [Concomitant]
  10. PSYLLIUM [Concomitant]
  11. SENNA [Concomitant]
  12. ZOLPIDEM [Concomitant]

REACTIONS (5)
  - ALANINE AMINOTRANSFERASE INCREASED [None]
  - ASPARTATE AMINOTRANSFERASE INCREASED [None]
  - ATRIAL FLUTTER [None]
  - BLOOD ALKALINE PHOSPHATASE INCREASED [None]
  - HYPERTHYROIDISM [None]
